FAERS Safety Report 4839426-0 (Version None)
Quarter: 2005Q4

REPORT INFORMATION
  Report Type: 
  Country: None (occurrence: None)
  Receive Date: 20051129
  Receipt Date: 20050330
  Transmission Date: 20060501
  Serious: No
  Sender: FDA-Public Use
  Company Number: 2005/01080

PATIENT
  Age: 62 Year
  Sex: Female

DRUGS (1)
  1. BUPROPION HCL [Suspect]
     Indication: DEPRESSION
     Dosage: 150MG AT NIGHT
     Route: 048
     Dates: start: 20050228

REACTIONS (4)
  - FATIGUE [None]
  - HUNGER [None]
  - INSOMNIA [None]
  - MYALGIA [None]
